FAERS Safety Report 8947135 (Version 2)
Quarter: 2013Q1

REPORT INFORMATION
  Report Type: Spontaneous
  Country: US (occurrence: US)
  Receive Date: 20121205
  Receipt Date: 20130103
  Transmission Date: 20140127
  Serious: No
  Sender: FDA-Public Use
  Company Number: US-PFIZER INC-2012301813

PATIENT
  Sex: 0

DRUGS (4)
  1. PREMARIN [Suspect]
     Dosage: UNK
     Dates: start: 1980
  2. PREMARIN [Suspect]
     Dosage: 0.3 TABLET DAILY
  3. PREMARIN [Suspect]
     Dosage: 1/2 TAB QD
  4. PREMARIN [Suspect]
     Dosage: 1/2 TAB EVERY OTHER DAY

REACTIONS (1)
  - Hot flush [Not Recovered/Not Resolved]
